FAERS Safety Report 7494670-1 (Version None)
Quarter: 2011Q2

REPORT INFORMATION
  Report Type: 
  Country: None (occurrence: None)
  Receive Date: 20110520
  Receipt Date: 20110509
  Transmission Date: 20111010
  Serious: Yes (Other)
  Sender: FDA-Public Use
  Company Number: IN-PFIZER INC-2011105808

PATIENT
  Age: 42 Year
  Sex: Male

DRUGS (11)
  1. CITALOPRAM HYDROBROMIDE [Interacting]
     Indication: DEPRESSION
  2. CITALOPRAM HYDROBROMIDE [Interacting]
     Indication: SCHIZOPHRENIA
  3. ASPIRIN [Suspect]
     Indication: DEEP VEIN THROMBOSIS
  4. QUETIAPINE [Suspect]
     Indication: DEPRESSION
  5. PROPRANOLOL [Suspect]
     Indication: DEPRESSION
  6. DICLOFENAC SODIUM [Interacting]
     Indication: PAIN
  7. ATORVASTATIN CALCIUM [Suspect]
  8. PROPRANOLOL [Suspect]
     Indication: SCHIZOPHRENIA
  9. WARFARIN SODIUM [Suspect]
     Indication: DEEP VEIN THROMBOSIS
  10. FENOFIBRATE [Suspect]
     Indication: DYSLIPIDAEMIA
  11. QUETIAPINE [Suspect]
     Indication: SCHIZOPHRENIA

REACTIONS (3)
  - DRUG INTERACTION [None]
  - SPINAL EPIDURAL HAEMORRHAGE [None]
  - MUCOSAL HAEMORRHAGE [None]
